FAERS Safety Report 23731161 (Version 1)
Quarter: 2024Q2

REPORT INFORMATION
  Report Type: Spontaneous
  Country: US (occurrence: None)
  Receive Date: 20240410
  Receipt Date: 20240410
  Transmission Date: 20240715
  Serious: No
  Sender: FDA-Public Use
  Company Number: None

PATIENT
  Age: 67 Year
  Sex: Male

DRUGS (1)
  1. CABENUVA [Suspect]
     Active Substance: CABOTEGRAVIR\RILPIVIRINE
     Indication: HIV infection
     Dosage: OTHER QUANTITY : 600-900 MG;?OTHER FREQUENCY : EVERY 2 MONTHS;?
     Route: 030

REACTIONS (3)
  - Fatigue [None]
  - Myalgia [None]
  - Pain [None]
